FAERS Safety Report 18544868 (Version 1)
Quarter: 2020Q4

REPORT INFORMATION
  Report Type: Spontaneous
  Country: US (occurrence: US)
  Receive Date: 20201125
  Receipt Date: 20201125
  Transmission Date: 20210114
  Serious: No
  Sender: FDA-Public Use
  Company Number: US-SA-2020SA240761

PATIENT

DRUGS (6)
  1. DUPIXENT [Suspect]
     Active Substance: DUPILUMAB
     Dosage: UNK
     Route: 058
  2. CETAPHIL [DIMETICONE;GLYCEROL] [Concomitant]
     Indication: LIP DRY
  3. COCONUT OIL [Concomitant]
     Active Substance: COCONUT OIL
     Indication: LIP DRY
  4. COSENTYX [Concomitant]
     Active Substance: SECUKINUMAB
     Dosage: UNK
  5. VASELINE [PARAFFIN] [Concomitant]
     Active Substance: PARAFFIN
     Indication: LIP DRY
     Dosage: UNK
  6. ELIDEL [Concomitant]
     Active Substance: PIMECROLIMUS
     Dosage: UNK

REACTIONS (2)
  - Oral mucosal blistering [Unknown]
  - Irritable bowel syndrome [Unknown]
